FAERS Safety Report 5763078-9 (Version None)
Quarter: 2008Q2

REPORT INFORMATION
  Report Type: 
  Country: None (occurrence: None)
  Receive Date: 20080609
  Receipt Date: 20080528
  Transmission Date: 20081010
  Serious: Yes (Hospitalization)
  Sender: FDA-Public Use
  Company Number: US-ELI_LILLY_AND_COMPANY-US200701000035

PATIENT
  Sex: Male
  Weight: 80.2 kg

DRUGS (7)
  1. HUMATROPE [Suspect]
     Indication: GROWTH HORMONE DEFICIENCY
     Dosage: 0.4 MG, EACH EVENING
     Route: 058
     Dates: start: 20030925, end: 20061228
  2. SYNTHROID [Concomitant]
     Indication: HYPOTHYROIDISM
     Dates: start: 20011128
  3. CORTISONE ACETATE [Concomitant]
     Indication: HYPOPITUITARISM
     Dates: start: 20011128
  4. PLENDIL                                 /SWE/ [Concomitant]
     Indication: INTERMITTENT CLAUDICATION
     Dates: start: 20011128
  5. SIMVASTATIN [Concomitant]
     Indication: HYPERLIPIDAEMIA
     Dates: start: 20030327
  6. COUMADIN [Concomitant]
     Indication: PROPHYLAXIS
     Dates: start: 20040314
  7. TESTOSTERONE CYCLOHEXYL PROPIONATE [Concomitant]
     Dates: start: 20030327

REACTIONS (1)
  - PAPILLARY THYROID CANCER [None]
